FAERS Safety Report 23956800 (Version 2)
Quarter: 2024Q4

REPORT INFORMATION
  Report Type: Spontaneous
  Country: US (occurrence: US)
  Receive Date: 20240610
  Receipt Date: 20241204
  Transmission Date: 20250115
  Serious: Yes (Other)
  Sender: AUROBINDO
  Company Number: US-MLMSERVICE-20240522-PI072065-00082-1

PATIENT
  Age: 57 Year
  Sex: Female

DRUGS (2)
  1. CARBOPLATIN [Suspect]
     Active Substance: CARBOPLATIN
     Indication: Lung adenocarcinoma
     Dosage: UNK
     Route: 065
  2. PACLITAXEL [Suspect]
     Active Substance: PACLITAXEL
     Indication: Lung adenocarcinoma

REACTIONS (6)
  - Leukopenia [Unknown]
  - Neuropathy peripheral [Unknown]
  - Anaemia [Unknown]
  - Fatigue [Unknown]
  - Mucosal inflammation [Unknown]
  - Nausea [Unknown]
